FAERS Safety Report 25980339 (Version 1)
Quarter: 2025Q4

REPORT INFORMATION
  Report Type: Spontaneous
  Country: JP (occurrence: JP)
  Receive Date: 20251030
  Receipt Date: 20251030
  Transmission Date: 20260117
  Serious: Yes (Other)
  Sender: GUERBET
  Company Number: JP-GUERBETG_JAPAN-JP-20250173

PATIENT
  Age: 81 Year
  Sex: Male
  Weight: 60 kg

DRUGS (2)
  1. LIPIODOL [Suspect]
     Active Substance: ETHIODIZED OIL
     Indication: Aneurysm repair
     Dosage: LIPIODOL MIXED WITH N-BUTYL 2-CYANOACRYLATE (NBCA) AT A RATIO OF 1:4
  2. ENBUCRILATE [Suspect]
     Active Substance: ENBUCRILATE
     Indication: Aneurysm repair
     Dosage: LIPIODOL MIXED WITH N-BUTYL 2-CYANOACRYLATE (NBCA) AT A RATIO OF 1:4

REACTIONS (2)
  - Abdominal compartment syndrome [Recovered/Resolved]
  - Retroperitoneal abscess [Recovered/Resolved]
